FAERS Safety Report 21843937 (Version 2)
Quarter: 2023Q1

REPORT INFORMATION
  Report Type: Spontaneous
  Country: JP (occurrence: JP)
  Receive Date: 20230110
  Receipt Date: 20230123
  Transmission Date: 20230417
  Serious: Yes (Life-Threatening, Hospitalization)
  Sender: FDA-Public Use
  Company Number: JP-TEVA-2023-JP-2844216

PATIENT
  Age: 77 Year
  Sex: Male

DRUGS (2)
  1. CLOPIDOGREL [Suspect]
     Active Substance: CLOPIDOGREL BISULFATE
     Indication: Peripheral arterial occlusive disease
     Dosage: 75 MILLIGRAM DAILY;
     Route: 065
  2. RIVAROXABAN [Suspect]
     Active Substance: RIVAROXABAN
     Indication: Atrial fibrillation
     Dosage: 10 MILLIGRAM DAILY;
     Route: 065

REACTIONS (7)
  - Haemorrhage [Recovered/Resolved]
  - Blood pressure decreased [Recovered/Resolved]
  - Loss of consciousness [Recovered/Resolved]
  - Haemoperitoneum [Recovering/Resolving]
  - Shock haemorrhagic [Unknown]
  - Abdominal pain upper [Unknown]
  - Haemoglobin decreased [Unknown]
